FAERS Safety Report 24547857 (Version 1)
Quarter: 2024Q4

REPORT INFORMATION
  Report Type: Spontaneous
  Country: US (occurrence: US)
  Receive Date: 20241025
  Receipt Date: 20241025
  Transmission Date: 20250115
  Serious: No
  Sender: JOHNSON AND JOHNSON
  Company Number: US-JNJFOC-20241020379

PATIENT
  Sex: Female

DRUGS (2)
  1. XARELTO [Suspect]
     Active Substance: RIVAROXABAN
     Indication: Product used for unknown indication
     Route: 048
     Dates: start: 2017
  2. XARELTO [Suspect]
     Active Substance: RIVAROXABAN
     Dosage: DOSE REDUCED
     Route: 048
     Dates: start: 2017

REACTIONS (1)
  - Epistaxis [Unknown]
